FAERS Safety Report 23576883 (Version 3)
Quarter: 2024Q1

REPORT INFORMATION
  Report Type: Spontaneous
  Country: GR (occurrence: GR)
  Receive Date: 20240228
  Receipt Date: 20240312
  Transmission Date: 20240410
  Serious: Yes (Death, Hospitalization)
  Sender: FDA-Public Use
  Company Number: GR-GENMAB-2024-00608

PATIENT
  Age: 81 Year
  Sex: Female

DRUGS (3)
  1. EPCORITAMAB [Suspect]
     Active Substance: EPCORITAMAB
     Indication: Non-Hodgkin^s lymphoma recurrent
     Dosage: FIRST INJECTION
     Route: 058
     Dates: start: 20240122, end: 20240122
  2. EPCORITAMAB [Suspect]
     Active Substance: EPCORITAMAB
     Dosage: SECOND INJECTION
     Route: 058
     Dates: start: 20240129, end: 20240129
  3. EPCORITAMAB [Suspect]
     Active Substance: EPCORITAMAB
     Dosage: THIRD INJECTION
     Route: 058
     Dates: start: 20240206, end: 20240206

REACTIONS (13)
  - Sepsis [Fatal]
  - Hospitalisation [Not Recovered/Not Resolved]
  - Incoherent [Not Recovered/Not Resolved]
  - Confusional state [Not Recovered/Not Resolved]
  - Fear [Not Recovered/Not Resolved]
  - Memory impairment [Recovering/Resolving]
  - Vision blurred [Not Recovered/Not Resolved]
  - Lymphadenopathy [Not Recovered/Not Resolved]
  - Amnesia [Recovering/Resolving]
  - Musculoskeletal disorder [Not Recovered/Not Resolved]
  - Discharge [Not Recovered/Not Resolved]
  - Visual impairment [Not Recovered/Not Resolved]
  - Peripheral swelling [Not Recovered/Not Resolved]

NARRATIVE: CASE EVENT DATE: 20240101
